FAERS Safety Report 24348564 (Version 1)
Quarter: 2024Q3

REPORT INFORMATION
  Report Type: Spontaneous
  Country: FR (occurrence: FR)
  Receive Date: 20240923
  Receipt Date: 20240923
  Transmission Date: 20241016
  Serious: Yes (Hospitalization)
  Sender: Haleon PLC
  Company Number: None

PATIENT
  Age: 50 Year
  Sex: Female
  Weight: 72 kg

DRUGS (1)
  1. IBUPROFEN [Suspect]
     Active Substance: IBUPROFEN
     Indication: Neck pain
     Dosage: 1/DAY ON AVERAGE FOR MIGRAINES OR PAIN
     Route: 048

REACTIONS (2)
  - Superior mesenteric artery dissection [Recovering/Resolving]
  - Intentional product misuse [Recovered/Resolved with Sequelae]

NARRATIVE: CASE EVENT DATE: 20240819
